FAERS Safety Report 11412538 (Version 1)
Quarter: 2015Q3

REPORT INFORMATION
  Report Type: Spontaneous
  Country: US (occurrence: US)
  Receive Date: 20150824
  Receipt Date: 20150824
  Transmission Date: 20151125
  Serious: No
  Sender: FDA-Public Use
  Company Number: US-JNJFOC-20150812887

PATIENT
  Age: 74 Year
  Sex: Female
  Weight: 56.7 kg

DRUGS (3)
  1. BIOTIN [Concomitant]
     Active Substance: BIOTIN
     Indication: HAIR GROWTH ABNORMAL
     Dosage: 5000 U/DAY; ABOUT A YEAR
     Route: 065
  2. WOMENS ROGAINE UNSCENTED [Suspect]
     Active Substance: MINOXIDIL
     Route: 061
  3. WOMENS ROGAINE UNSCENTED [Suspect]
     Active Substance: MINOXIDIL
     Indication: ALOPECIA
     Dosage: HALF CAP; USED AROUND FEBRUARY OR MARCH
     Route: 061

REACTIONS (3)
  - Drug ineffective [Unknown]
  - Skin disorder [Recovered/Resolved]
  - Skin exfoliation [Recovered/Resolved]
